FAERS Safety Report 25478028 (Version 1)
Quarter: 2025Q2

REPORT INFORMATION
  Report Type: Spontaneous
  Country: CO (occurrence: CO)
  Receive Date: 20250625
  Receipt Date: 20250625
  Transmission Date: 20250717
  Serious: Yes (Hospitalization)
  Sender: HELSINN HEALTHCARE
  Company Number: CO-HBP-2025CO032143

PATIENT
  Sex: Female

DRUGS (1)
  1. MECHLORETHAMINE HYDROCHLORIDE [Suspect]
     Active Substance: MECHLORETHAMINE HYDROCHLORIDE

REACTIONS (4)
  - Vomiting [Not Recovered/Not Resolved]
  - Pruritus [Not Recovered/Not Resolved]
  - Occupational exposure to product [Unknown]
  - Accidental exposure to product packaging [Unknown]

NARRATIVE: CASE EVENT DATE: 20250617
